FAERS Safety Report 10045055 (Version 1)
Quarter: 2014Q1

REPORT INFORMATION
  Report Type: Spontaneous
  Country: CH (occurrence: CH)
  Receive Date: 20140328
  Receipt Date: 20140328
  Transmission Date: 20141002
  Serious: Yes (Other)
  Sender: FDA-Public Use
  Company Number: CH-ELI_LILLY_AND_COMPANY-CH201403007791

PATIENT
  Age: 64 Year
  Sex: Female

DRUGS (2)
  1. FORSTEO [Suspect]
     Indication: OSTEOPOROSIS
     Dosage: 20 UG, QD
     Route: 058
     Dates: start: 201310
  2. VI-DE 3 [Concomitant]
     Dosage: UNK
     Route: 048

REACTIONS (1)
  - Micturition urgency [Unknown]
